FAERS Safety Report 4265873-4 (Version None)
Quarter: 2004Q1

REPORT INFORMATION
  Report Type: 
  Country: None (occurrence: None)
  Receive Date: 20040107
  Receipt Date: 20040107
  Transmission Date: 20041129
  Serious: No
  Sender: FDA-Public Use
  Company Number: None

PATIENT

DRUGS (10)
  1. RITUXIMAB [Suspect]
     Dosage: 375 MG/M2 IV ON DAY 1
     Route: 042
  2. METHOTREXATE [Suspect]
     Dosage: 300 MG/M2 IV OVER 4 HOURS ON DAY 2
     Route: 042
  3. CYCLOPHOSPHAMIDE [Suspect]
     Dosage: 2000 MG/M2 IV IN 1 LITER NS OVER 2 HOURS ON DAY 3
     Route: 042
  4. DOXORUBICIN HCL [Suspect]
     Dosage: 50 MG/M2 IVP ON DAY 3
     Route: 042
  5. VINCRISTINE [Suspect]
     Dosage: 1.4 MG/M2 IVP ON DAY 3
     Route: 042
  6. PREDNISONE [Suspect]
     Dosage: 100 MG/M2 PO ON DAYS 3-7
     Route: 048
  7. LEUCOVORIN CALCIUM [Suspect]
     Dosage: 50 MG/M2 IV Q6 HOURS X 3 DOSES
     Route: 042
  8. NEUPOGEN [Suspect]
     Dosage: 5UG/KG SQ DAILY BEGINNING ON DAY 4
     Route: 058
  9. LEVOFLOXACIN [Suspect]
     Dosage: 500 MG PO QD
     Route: 048
  10. FLUCONAZOLE [Suspect]
     Dosage: 200 MG PO QD
     Route: 048

REACTIONS (2)
  - NON-SMALL CELL LUNG CANCER STAGE I [None]
  - POST PROCEDURAL COMPLICATION [None]
